FAERS Safety Report 7878979-5 (Version None)
Quarter: 2011Q4

REPORT INFORMATION
  Report Type: 
  Country: None (occurrence: None)
  Receive Date: 20111101
  Receipt Date: 20111021
  Transmission Date: 20120403
  Serious: Yes (Hospitalization)
  Sender: FDA-Public Use
  Company Number: PHEH2011US06779

PATIENT
  Sex: Male

DRUGS (2)
  1. VIAGRA [Interacting]
     Dosage: 50 MG, UNK
     Dates: end: 20111005
  2. GILENYA [Suspect]
     Indication: MULTIPLE SCLEROSIS
     Dosage: 0.5 MG, QD
     Route: 048
     Dates: start: 20110923

REACTIONS (10)
  - PRESYNCOPE [None]
  - DRUG INTERACTION [None]
  - SPEECH DISORDER [None]
  - DIZZINESS [None]
  - BLOOD CREATININE INCREASED [None]
  - BLOOD UREA INCREASED [None]
  - NAUSEA [None]
  - UNRESPONSIVE TO STIMULI [None]
  - MEMORY IMPAIRMENT [None]
  - OXYGEN SATURATION DECREASED [None]
